FAERS Safety Report 13790302 (Version 3)
Quarter: 2017Q4

REPORT INFORMATION
  Report Type: Spontaneous
  Country: KR (occurrence: KR)
  Receive Date: 20170725
  Receipt Date: 20171228
  Transmission Date: 20180320
  Serious: Yes (Death)
  Sender: FDA-Public Use
  Company Number: KR-SUN PHARMACEUTICAL INDUSTRIES LTD-2017R1-146103

PATIENT
  Age: 11 Year
  Sex: Female

DRUGS (1)
  1. ACETAZOLAMIDE ZOLADIN, BCWORLD PHARM CO., LTD., SEOUL, KOREA [Suspect]
     Active Substance: ACETAZOLAMIDE SODIUM
     Indication: PRODUCT USED FOR UNKNOWN INDICATION
     Dosage: UNK MG, UNK
     Route: 065

REACTIONS (2)
  - Brain death [Fatal]
  - Cerebral infarction [Fatal]
